FAERS Safety Report 19856900 (Version 1)
Quarter: 2021Q3

REPORT INFORMATION
  Report Type: Spontaneous
  Country: US (occurrence: US)
  Receive Date: 20210920
  Receipt Date: 20210920
  Transmission Date: 20211014
  Serious: No
  Sender: FDA-Public Use
  Company Number: US-TAKEDA-2021TUS057611

PATIENT
  Sex: Female
  Weight: 49 kg

DRUGS (4)
  1. INSULIN [Concomitant]
     Active Substance: INSULIN NOS
     Dosage: UNK
  2. TRINTELLIX [Suspect]
     Active Substance: VORTIOXETINE HYDROBROMIDE
     Indication: DEPRESSION
     Dosage: 5 MILLIGRAM, QD
     Route: 048
     Dates: start: 20210825
  3. TRINTELLIX [Suspect]
     Active Substance: VORTIOXETINE HYDROBROMIDE
     Dosage: 5 MILLIGRAM, QOD
     Route: 048
  4. INSULIN [Concomitant]
     Active Substance: INSULIN NOS
     Dosage: UNK
     Route: 065

REACTIONS (2)
  - No adverse event [Unknown]
  - Inappropriate schedule of product administration [Unknown]
